FAERS Safety Report 26085922 (Version 1)
Quarter: 2025Q4

REPORT INFORMATION
  Report Type: Spontaneous
  Country: CN (occurrence: CN)
  Receive Date: 20251125
  Receipt Date: 20251125
  Transmission Date: 20260118
  Serious: No
  Sender: ALKEM
  Company Number: CN-ALKEM LABORATORIES LIMITED-CN-ALKEM-2025-07828

PATIENT

DRUGS (4)
  1. METFORMIN HYDROCHLORIDE [Suspect]
     Active Substance: METFORMIN HYDROCHLORIDE
     Indication: Product used for unknown indication
     Dosage: 1000 MILLIGRAM (FIRST LOADING DOSE, TABLETS ON DAY 1)
     Route: 048
  2. METFORMIN HYDROCHLORIDE [Suspect]
     Active Substance: METFORMIN HYDROCHLORIDE
     Dosage: 500 MILLIGRAM, BID (FROM DAY 1 TO DAY 3)
     Route: 048
  3. Efsubaglutide Alfa [Concomitant]
     Indication: Product used for unknown indication
     Dosage: 1 MILLIGRAM
     Route: 058
  4. Efsubaglutide Alfa [Concomitant]
     Dosage: 3 MILLIGRAM
     Route: 058

REACTIONS (3)
  - Heart rate increased [Unknown]
  - Abdominal discomfort [Unknown]
  - Vomiting [Unknown]
